FAERS Safety Report 9442753 (Version 1)
Quarter: 2013Q3

REPORT INFORMATION
  Report Type: Spontaneous
  Country: US (occurrence: US)
  Receive Date: 20130806
  Receipt Date: 20130806
  Transmission Date: 20140515
  Serious: No
  Sender: FDA-Public Use
  Company Number: US-ABBOTT-12P-163-0989262-00

PATIENT
  Age: 89 Year
  Sex: Female
  Weight: 40.86 kg

DRUGS (2)
  1. DEPAKOTE ER [Suspect]
     Indication: AGITATION
     Dosage: LOWEST DOSE
     Dates: start: 20120912
  2. DEPAKOTE ER [Suspect]
     Indication: CONFUSIONAL STATE

REACTIONS (2)
  - Off label use [Unknown]
  - Local swelling [Not Recovered/Not Resolved]
